FAERS Safety Report 5019876-2 (Version None)
Quarter: 2006Q2

REPORT INFORMATION
  Report Type: 
  Country: None (occurrence: None)
  Receive Date: 20060605
  Receipt Date: 20060605
  Transmission Date: 20061013
  Serious: Yes (Other)
  Sender: FDA-Public Use
  Company Number: None

PATIENT
  Age: 48 Year
  Sex: Male

DRUGS (1)
  1. LEVAQUIN [Suspect]
     Indication: SINUSITIS
     Dosage: 1 TABLET -500 MG- ONE DAILY BUCCAL
     Route: 002
     Dates: start: 20060524, end: 20060525

REACTIONS (10)
  - ARTHRALGIA [None]
  - BODY TEMPERATURE INCREASED [None]
  - CHILLS [None]
  - DIFFICULTY IN WALKING [None]
  - ERYTHEMA [None]
  - MALAISE [None]
  - OCULAR HYPERAEMIA [None]
  - PAIN [None]
  - RASH MACULAR [None]
  - SENSORY DISTURBANCE [None]
